FAERS Safety Report 6581715-6 (Version None)
Quarter: 2010Q1

REPORT INFORMATION
  Report Type: 
  Country: None (occurrence: None)
  Receive Date: 20100215
  Receipt Date: 20100201
  Transmission Date: 20100710
  Serious: Yes (Hospitalization, Other)
  Sender: FDA-Public Use
  Company Number: PHHY2010DE06369

PATIENT
  Age: 70 Year
  Sex: Female

DRUGS (4)
  1. METOPROLOL TARTRATE [Suspect]
     Indication: HYPERTENSION
     Dosage: 2 TABLETS (50 MG)/ DAY
     Route: 048
     Dates: start: 19980101
  2. HYDROCHLOROTHIAZIDE [Suspect]
     Indication: HYPERTENSION
     Dosage: 25 MG /DAY
     Route: 048
     Dates: start: 20040101, end: 20080905
  3. AMLODIPINE [Suspect]
     Indication: HYPERTENSION
     Dosage: 1 IN 1 DAY
     Route: 048
     Dates: start: 19980101, end: 20080905
  4. LEVOTHYROXINE SODIUM [Concomitant]
     Indication: HYPOTHYROIDISM
     Dosage: 1 IN 1DAY
     Route: 048
     Dates: start: 20080815

REACTIONS (3)
  - FALL [None]
  - HYPOKALAEMIA [None]
  - SYNCOPE [None]
